FAERS Safety Report 10195846 (Version 1)
Quarter: 2014Q2

REPORT INFORMATION
  Report Type: Spontaneous
  Country: US (occurrence: DK)
  Receive Date: 20140527
  Receipt Date: 20140527
  Transmission Date: 20141212
  Serious: Yes (Hospitalization, Other)
  Sender: FDA-Public Use
  Company Number: 2013SP006537

PATIENT
  Age: 67 Year
  Sex: Female
  Weight: 54 kg

DRUGS (5)
  1. DOXORUBICIN [Suspect]
     Indication: LEIOMYOSARCOMA METASTATIC
     Route: 040
     Dates: start: 20130315, end: 20130315
  2. DOXORUBICIN [Suspect]
     Indication: LEIOMYOSARCOMA METASTATIC
     Route: 040
     Dates: start: 20130221, end: 20130221
  3. PANTOPRAZOLE [Concomitant]
     Dates: start: 20130322
  4. DOMPERIDONE [Concomitant]
     Dates: start: 20130302
  5. FLUCONAZOLE [Concomitant]
     Dates: start: 20130323, end: 20130401

REACTIONS (5)
  - Deep vein thrombosis [Recovered/Resolved]
  - Swelling [Recovered/Resolved]
  - Platelet count decreased [Unknown]
  - White blood cell count increased [Unknown]
  - Haemoglobin decreased [Unknown]
